FAERS Safety Report 7383807-0 (Version None)
Quarter: 2011Q1

REPORT INFORMATION
  Report Type: 
  Country: None (occurrence: None)
  Receive Date: 20110330
  Receipt Date: 20110321
  Transmission Date: 20110831
  Serious: Yes (Death, Hospitalization)
  Sender: FDA-Public Use
  Company Number: IE-MEDIMMUNE-MEDI-0012257

PATIENT
  Sex: Female
  Weight: 6.06 kg

DRUGS (4)
  1. HYOSCINE [Concomitant]
  2. GAVISCON [Concomitant]
  3. RANITIDINE [Concomitant]
  4. SYNAGIS [Suspect]
     Route: 030
     Dates: start: 20101104, end: 20110114

REACTIONS (2)
  - RESPIRATORY FAILURE [None]
  - LOWER RESPIRATORY TRACT INFECTION [None]
